FAERS Safety Report 10645560 (Version 1)
Quarter: 2014Q4

REPORT INFORMATION
  Report Type: Spontaneous
  Country: GB (occurrence: GB)
  Receive Date: 20141211
  Receipt Date: 20141211
  Transmission Date: 20150529
  Serious: Yes (Other)
  Sender: FDA-Public Use
  Company Number: GB-TEVA-526900ISR

PATIENT
  Age: 60 Year
  Sex: Female
  Weight: 91 kg

DRUGS (2)
  1. LEVOTHYROXINE [Suspect]
     Active Substance: LEVOTHYROXINE
     Indication: HYPOTHYROIDISM
     Route: 048
  2. NAPROXEN. [Interacting]
     Active Substance: NAPROXEN
     Indication: ARTHRITIS
     Route: 048

REACTIONS (2)
  - Hypoaesthesia [Recovered/Resolved]
  - Drug interaction [Unknown]
